FAERS Safety Report 4337389-8 (Version None)
Quarter: 2004Q2

REPORT INFORMATION
  Report Type: 
  Country: None (occurrence: None)
  Receive Date: 20040408
  Receipt Date: 20040326
  Transmission Date: 20050107
  Serious: Yes (Other)
  Sender: FDA-Public Use
  Company Number: 2004021465

PATIENT
  Age: 32 Year
  Sex: Male

DRUGS (3)
  1. PHENYTOIN [Suspect]
     Indication: ILL-DEFINED DISORDER
  2. VIGABATRIN (VIGABATRIN) [Suspect]
     Indication: POST-TRAUMATIC EPILEPSY
     Dosage: 1000 MG (DAILY)
  3. CARBAMAZEPINE [Suspect]
     Indication: ILL-DEFINED DISORDER

REACTIONS (1)
  - LINEAR IGA DISEASE [None]
